FAERS Safety Report 7275620 (Version 4)
Quarter: 2014Q1

REPORT INFORMATION
  Report Type: Spontaneous
  Country: US (occurrence: US)
  Receive Date: 20100211
  Receipt Date: 20140203
  Transmission Date: 20141002
  Serious: Yes (Hospitalization)
  Sender: FDA-Public Use
  Company Number: US-BAYER-201013292NA

PATIENT
  Age: 25 Year
  Sex: Female
  Weight: 106.55 kg

DRUGS (2)
  1. YAZ [Suspect]
     Dosage: AS USED DOSE: UNK
     Route: 048
     Dates: start: 200812, end: 2009
  2. LORTAB [Concomitant]
     Indication: PAIN

REACTIONS (2)
  - Cholecystitis acute [None]
  - Cholecystectomy [Unknown]
